FAERS Safety Report 6879227-5 (Version None)
Quarter: 2010Q3

REPORT INFORMATION
  Report Type: 
  Country: None (occurrence: None)
  Receive Date: 20100728
  Receipt Date: 20100713
  Transmission Date: 20110219
  Serious: Yes (Hospitalization, Other)
  Sender: FDA-Public Use
  Company Number: PHHY2010US39574

PATIENT
  Sex: Male

DRUGS (2)
  1. EXJADE [Suspect]
     Dosage: 1500 MG, QD
     Route: 048
  2. REVLIMID [Suspect]
     Indication: MYELODYSPLASTIC SYNDROME
     Dosage: 10 MG, QD
     Dates: start: 20100413

REACTIONS (6)
  - DEHYDRATION [None]
  - DIARRHOEA [None]
  - INFECTION [None]
  - MALAISE [None]
  - RASH [None]
  - SYNCOPE [None]
